FAERS Safety Report 8467503-4 (Version None)
Quarter: 2012Q2

REPORT INFORMATION
  Report Type: 
  Country: None (occurrence: None)
  Receive Date: 20120626
  Receipt Date: 20120621
  Transmission Date: 20120825
  Serious: No
  Sender: FDA-Public Use
  Company Number: US-BAYER-2012-062120

PATIENT
  Sex: Female

DRUGS (7)
  1. LEXAPRO [Concomitant]
     Dosage: 10 MG, UNK
  2. VICODIN [Concomitant]
     Dosage: 5/500 MG
  3. KLONOPIN [Concomitant]
     Dosage: 0.5 MG, UNK
  4. METFORMIN HCL [Concomitant]
     Dosage: 500 MG, UNK
  5. AMBIEN [Concomitant]
     Dosage: 10 MG, UNK
  6. LYRICA [Concomitant]
     Dosage: 150 MG, UNK
  7. BETASERON [Suspect]
     Dosage: 1 ML, QOD

REACTIONS (3)
  - MUSCULAR WEAKNESS [None]
  - VISION BLURRED [None]
  - RASH [None]
